FAERS Safety Report 17430357 (Version 3)
Quarter: 2020Q2

REPORT INFORMATION
  Report Type: Spontaneous
  Country: US (occurrence: US)
  Receive Date: 20200218
  Receipt Date: 20200624
  Transmission Date: 20200713
  Serious: No
  Sender: FDA-Public Use
  Company Number: US-PFIZER INC-2020071627

PATIENT
  Age: 79 Year
  Sex: Female
  Weight: 48.99 kg

DRUGS (2)
  1. LYRICA [Suspect]
     Active Substance: PREGABALIN
     Indication: FIBROMYALGIA
     Dosage: 75 MG, 3X/DAY
     Route: 048
  2. XTAMPZA ER [Concomitant]
     Active Substance: OXYCODONE
     Dosage: 13.5 MG, 2X/DAY
     Dates: start: 2018

REACTIONS (1)
  - Emotional disorder [Unknown]

NARRATIVE: CASE EVENT DATE: 202002
